FAERS Safety Report 6194124-9 (Version None)
Quarter: 2009Q2

REPORT INFORMATION
  Report Type: 
  Country: None (occurrence: None)
  Receive Date: 20090518
  Receipt Date: 20090511
  Transmission Date: 20091009
  Serious: Yes (Other)
  Sender: FDA-Public Use
  Company Number: PHHO2009DE06046

PATIENT
  Sex: Male

DRUGS (1)
  1. RAD 666 RAD+TAB [Suspect]
     Indication: RENAL CANCER METASTATIC
     Dosage: OPEN LABEL
     Route: 048

REACTIONS (1)
  - PULMONARY FIBROSIS [None]
